FAERS Safety Report 14628837 (Version 1)
Quarter: 2018Q1

REPORT INFORMATION
  Report Type: Spontaneous
  Country: FR (occurrence: FR)
  Receive Date: 20180313
  Receipt Date: 20180313
  Transmission Date: 20180509
  Serious: Yes (Other)
  Sender: FDA-Public Use
  Company Number: FR-MERCK KGAA-2043569

PATIENT
  Age: 28 Year
  Sex: Female

DRUGS (1)
  1. NOVOTHYROX [Suspect]
     Active Substance: LEVOTHYROXINE SODIUM
     Indication: POST PROCEDURAL HYPOTHYROIDISM
     Dates: start: 201706

REACTIONS (8)
  - Vertigo [None]
  - Ovarian cyst [None]
  - Uterine malposition [None]
  - Hyperthyroidism [None]
  - Menstruation irregular [None]
  - Constipation [None]
  - Hypothyroidism [None]
  - Dysmenorrhoea [None]

NARRATIVE: CASE EVENT DATE: 2017
